FAERS Safety Report 25220232 (Version 1)
Quarter: 2025Q2

REPORT INFORMATION
  Report Type: Spontaneous
  Country: US (occurrence: US)
  Receive Date: 20250421
  Receipt Date: 20250421
  Transmission Date: 20250716
  Serious: Yes (Other)
  Sender: SANDOZ
  Company Number: US-SANDOZ-SDZ2025US023576

PATIENT
  Sex: Female

DRUGS (1)
  1. CYCLOSPORINE [Suspect]
     Active Substance: CYCLOSPORINE
     Indication: Product used for unknown indication
     Dosage: 75 MG, BID, ATLEAST 25 PLUS YEARS
     Route: 065

REACTIONS (8)
  - Intestinal obstruction [Unknown]
  - Personality change [Unknown]
  - Lethargy [Unknown]
  - Dysarthria [Unknown]
  - Depression [Unknown]
  - Anxiety [Unknown]
  - Insomnia [Unknown]
  - Inappropriate schedule of product administration [Unknown]
